FAERS Safety Report 21895908 (Version 1)
Quarter: 2023Q1

REPORT INFORMATION
  Report Type: Spontaneous
  Country: US (occurrence: US)
  Receive Date: 20230123
  Receipt Date: 20230123
  Transmission Date: 20230418
  Serious: No
  Sender: FDA-Public Use
  Company Number: US-PCCINC-2021-PEL-000915

PATIENT

DRUGS (1)
  1. GABLOFEN [Suspect]
     Active Substance: BACLOFEN
     Indication: Product used for unknown indication
     Dosage: 288.9 MICROGRAM/DAY
     Route: 037

REACTIONS (2)
  - Maternal exposure during pregnancy [Unknown]
  - Maternal exposure during delivery [Unknown]
